FAERS Safety Report 8920154 (Version 3)
Quarter: 2015Q1

REPORT INFORMATION
  Report Type: Report from Study
  Country: US (occurrence: US)
  Receive Date: 20121122
  Receipt Date: 20150304
  Transmission Date: 20150721
  Serious: Yes (Hospitalization, Other)
  Sender: FDA-Public Use
  Company Number: PHEH2012US020606

PATIENT
  Sex: Male

DRUGS (1)
  1. EXELON PATCH [Suspect]
     Active Substance: RIVASTIGMINE
     Indication: PRODUCT USED FOR UNKNOWN INDICATION
     Dosage: 4.6 MG, DAILY
     Route: 062

REACTIONS (23)
  - Peripheral vascular disorder [Recovering/Resolving]
  - Belligerence [Recovering/Resolving]
  - Memory impairment [Recovering/Resolving]
  - Cardiomyopathy [Recovering/Resolving]
  - Left ventricular dysfunction [Recovering/Resolving]
  - Osteoarthritis [Recovering/Resolving]
  - Hemiplegia [Recovering/Resolving]
  - Impulsive behaviour [Recovering/Resolving]
  - Ventricular tachycardia [Recovering/Resolving]
  - Hyperlipidaemia [Recovering/Resolving]
  - Confusional state [Recovering/Resolving]
  - Personality change [Recovering/Resolving]
  - Balance disorder [Recovering/Resolving]
  - Abnormal behaviour [Recovering/Resolving]
  - Dementia [Recovering/Resolving]
  - Hypertension [Recovering/Resolving]
  - Cerebrovascular accident [Unknown]
  - Ischaemia [Recovering/Resolving]
  - Benign prostatic hyperplasia [Recovering/Resolving]
  - Dysgraphia [Not Recovered/Not Resolved]
  - Hemiparesis [Recovering/Resolving]
  - Coronary artery disease [Recovering/Resolving]
  - Fall [Recovering/Resolving]
